FAERS Safety Report 7301444-0 (Version None)
Quarter: 2011Q1

REPORT INFORMATION
  Report Type: 
  Country: None (occurrence: None)
  Receive Date: 20110218
  Receipt Date: 20110215
  Transmission Date: 20110831
  Serious: Yes (Other)
  Sender: FDA-Public Use
  Company Number: US-PFIZER INC-2011034603

PATIENT
  Sex: Male
  Weight: 77.098 kg

DRUGS (4)
  1. ZETIA [Concomitant]
     Indication: BLOOD CHOLESTEROL ABNORMAL
     Dosage: 10 MG, 1X/DAY
  2. TAMSULOSIN HYDROCHLORIDE [Concomitant]
     Indication: NOCTURIA
     Dosage: UNK
  3. LISINOPRIL [Concomitant]
     Indication: CARDIAC DISORDER
     Dosage: 5 MG, UNK
  4. LIPITOR [Suspect]
     Indication: MYOCARDIAL INFARCTION
     Dosage: 20 MG, UNK
     Dates: start: 19980101, end: 20110207

REACTIONS (3)
  - ALANINE AMINOTRANSFERASE INCREASED [None]
  - LABORATORY TEST ABNORMAL [None]
  - PROTHROMBIN TIME PROLONGED [None]
